FAERS Safety Report 7611979-9 (Version None)
Quarter: 2011Q3

REPORT INFORMATION
  Report Type: 
  Country: None (occurrence: None)
  Receive Date: 20110715
  Receipt Date: 20110707
  Transmission Date: 20111222
  Serious: Yes (Hospitalization)
  Sender: FDA-Public Use
  Company Number: US-JNJFOC-20100802457

PATIENT
  Sex: Male
  Weight: 48.72 kg

DRUGS (5)
  1. INFLIXIMAB, RECOMBINANT [Suspect]
     Indication: INFLAMMATORY BOWEL DISEASE
     Route: 042
     Dates: start: 20070911
  2. FOLIC ACID [Concomitant]
  3. MULTI-VITAMINS [Concomitant]
  4. MILK OF MAGNESIA TAB [Concomitant]
  5. LOVAZA [Concomitant]

REACTIONS (1)
  - CELLULITIS [None]
